FAERS Safety Report 26187413 (Version 1)
Quarter: 2025Q4

REPORT INFORMATION
  Report Type: Spontaneous
  Country: US (occurrence: US)
  Receive Date: 20251222
  Receipt Date: 20251222
  Transmission Date: 20260118
  Serious: No
  Sender: NOVARTIS
  Company Number: US-002147023-NVSC2025US193160

PATIENT
  Sex: Male

DRUGS (1)
  1. ENTRESTO [Suspect]
     Active Substance: SACUBITRIL\VALSARTAN
     Indication: Cardiac disorder
     Dosage: 50 MG (49/51 MG CUT INTO HALF)
     Route: 065

REACTIONS (3)
  - Wrong technique in product usage process [Unknown]
  - Nausea [Unknown]
  - Dizziness [Unknown]
